FAERS Safety Report 10402395 (Version 1)
Quarter: 2014Q3

REPORT INFORMATION
  Report Type: Spontaneous
  Country: US (occurrence: None)
  Receive Date: 20140821
  Receipt Date: 20140821
  Transmission Date: 20150326
  Serious: Yes (Disabling, Congenital Anomaly)
  Sender: FDA-Public Use
  Company Number: None

PATIENT
  Age: 19 Year
  Sex: Male
  Weight: 13.61 kg

DRUGS (1)
  1. ZOFRAN [Suspect]
     Active Substance: ONDANSETRON HYDROCHLORIDE
     Indication: NAUSEA
     Dosage: 2X DAILY TWICE DAILY TAKEN BY MOUTH
     Route: 048

REACTIONS (11)
  - Apnoeic attack [None]
  - Cardiac murmur [None]
  - Adenoidal hypertrophy [None]
  - Apnoea [None]
  - Bradypnoea [None]
  - Tooth disorder [None]
  - Atrial septal defect [None]
  - Gastrooesophageal reflux disease [None]
  - Bradycardia neonatal [None]
  - Cleft uvula [None]
  - Maternal drugs affecting foetus [None]

NARRATIVE: CASE EVENT DATE: 20120529
